FAERS Safety Report 18979353 (Version 1)
Quarter: 2021Q1

REPORT INFORMATION
  Report Type: Spontaneous
  Country: US (occurrence: US)
  Receive Date: 20210308
  Receipt Date: 20210308
  Transmission Date: 20210420
  Serious: No
  Sender: FDA-Public Use
  Company Number: ALC2019US000441

PATIENT

DRUGS (6)
  1. BETADINE [Suspect]
     Active Substance: POVIDONE-IODINE
     Indication: PRODUCT USED FOR UNKNOWN INDICATION
     Dosage: UNK
     Route: 065
  2. IMITREX [Concomitant]
     Active Substance: SUMATRIPTAN SUCCINATE
     Indication: PRODUCT USED FOR UNKNOWN INDICATION
     Route: 065
  3. SUCCINYLCHOLINE [SUXAMETHONIUM] [Concomitant]
     Active Substance: SUCCINYLCHOLINE
     Indication: PRODUCT USED FOR UNKNOWN INDICATION
     Route: 065
  4. ROBAXIN?750 [Concomitant]
     Active Substance: METHOCARBAMOL
     Indication: PRODUCT USED FOR UNKNOWN INDICATION
     Dosage: 1 TABLET, TID AS NEEDED
     Route: 048
  5. CEPHALOSPORIN NOS [Concomitant]
     Active Substance: UNSPECIFIED INGREDIENT
     Indication: PRODUCT USED FOR UNKNOWN INDICATION
     Route: 065
  6. PENICILLIN B [Concomitant]
     Active Substance: PHENETICILLIN
     Indication: PRODUCT USED FOR UNKNOWN INDICATION
     Route: 065

REACTIONS (1)
  - Rash [Unknown]
